FAERS Safety Report 20491795 (Version 2)
Quarter: 2022Q4

REPORT INFORMATION
  Report Type: Spontaneous
  Country: US (occurrence: US)
  Receive Date: 20220218
  Receipt Date: 20221115
  Transmission Date: 20230113
  Serious: Yes (Death, Hospitalization, Other)
  Sender: FDA-Public Use
  Company Number: US-PFIZER INC-202200256064

PATIENT
  Age: 47 Year
  Sex: Male

DRUGS (4)
  1. NIFEDIPINE [Suspect]
     Active Substance: NIFEDIPINE
     Dosage: UNK (INGESTION)
     Route: 048
  2. LABETALOL HYDROCHLORIDE [Suspect]
     Active Substance: LABETALOL HYDROCHLORIDE
     Dosage: UNK (INGESTION)
     Route: 048
  3. LEVETIRACETAM [Suspect]
     Active Substance: LEVETIRACETAM
     Dosage: UNK (INGESTION)
     Route: 048
  4. MINOXIDIL [Suspect]
     Active Substance: MINOXIDIL
     Dosage: UNK (INGESTION)
     Route: 048

REACTIONS (2)
  - Completed suicide [Fatal]
  - Product use issue [Fatal]

NARRATIVE: CASE EVENT DATE: 20200101
